FAERS Safety Report 12567641 (Version 1)
Quarter: 2016Q3

REPORT INFORMATION
  Report Type: Spontaneous
  Country: US (occurrence: US)
  Receive Date: 20160718
  Receipt Date: 20160718
  Transmission Date: 20161109
  Serious: No
  Sender: FDA-Public Use
  Company Number: US-ASTELLAS-2016US004515

PATIENT
  Sex: Female

DRUGS (5)
  1. MYRBETRIQ [Suspect]
     Active Substance: MIRABEGRON
     Indication: BLADDER DISORDER
  2. MYRBETRIQ [Suspect]
     Active Substance: MIRABEGRON
     Indication: NEUROMYOPATHY
     Route: 048
  3. MYRBETRIQ [Suspect]
     Active Substance: MIRABEGRON
     Indication: URGE INCONTINENCE
  4. MYRBETRIQ [Suspect]
     Active Substance: MIRABEGRON
     Indication: MULTIPLE SCLEROSIS
  5. MYRBETRIQ [Suspect]
     Active Substance: MIRABEGRON
     Indication: HYPERTONIC BLADDER

REACTIONS (2)
  - Urinary tract infection [Unknown]
  - Intentional product misuse [Unknown]
